FAERS Safety Report 8158552-4 (Version None)
Quarter: 2012Q1

REPORT INFORMATION
  Report Type: 
  Country: None (occurrence: None)
  Receive Date: 20120217
  Receipt Date: 20120201
  Transmission Date: 20120608
  Serious: Yes (Other)
  Sender: FDA-Public Use
  Company Number: PERC20120019

PATIENT
  Age: 59 Year
  Sex: Male
  Weight: 90.7194 kg

DRUGS (8)
  1. ENALAPRIL/HYDROCHLOROTHIAZIDE (HYDROCHLOROTHIAZIE, ENALAPRIL MALEATE) [Concomitant]
  2. NIFEDIAC CC (NIFEDIPINE) [Concomitant]
  3. PERCOCET [Suspect]
     Indication: PAIN
     Dosage: 5/325 MG, 10 IN 1 M, ORAL
     Route: 048
     Dates: start: 20070101
  4. ASA (ACETYLSALICYLIC ACID) (SALICYLIC ACID) [Concomitant]
  5. DIAZEPAM [Concomitant]
  6. OXYCODONE AND ACETAMINOPHEN [Suspect]
     Indication: PAIN
     Dosage: 5/325 MG, 10 IN 1 M, ORAL
     Route: 048
  7. LESCOL XL [Concomitant]
  8. VIAGRA [Concomitant]

REACTIONS (4)
  - PRODUCT QUALITY ISSUE [None]
  - DRUG INEFFECTIVE [None]
  - INSOMNIA [None]
  - DEPENDENCE [None]
